FAERS Safety Report 7765834-4 (Version None)
Quarter: 2011Q3

REPORT INFORMATION
  Report Type: 
  Country: None (occurrence: None)
  Receive Date: 20110921
  Receipt Date: 20110912
  Transmission Date: 20111222
  Serious: Yes (Other)
  Sender: FDA-Public Use
  Company Number: US-BAYER-2011-084738

PATIENT
  Age: 58 Year
  Sex: Female
  Weight: 58.957 kg

DRUGS (3)
  1. SINGULAIR [Concomitant]
  2. ALKA-SELTZER PLUS COLD SPARKLING ORIGINAL [Suspect]
     Dosage: 2 DF, ONCE
     Route: 048
     Dates: start: 20110907, end: 20110907
  3. VITAMIN D [Concomitant]

REACTIONS (2)
  - ASTHMA [None]
  - RESPIRATORY ARREST [None]
